FAERS Safety Report 23810704 (Version 1)
Quarter: 2024Q2

REPORT INFORMATION
  Report Type: Report from Study
  Country: US (occurrence: US)
  Receive Date: 20240502
  Receipt Date: 20240502
  Transmission Date: 20240716
  Serious: Yes (Hospitalization)
  Sender: FDA-Public Use
  Company Number: US-BIOGEN-2024BI01262540

PATIENT
  Age: 73 Year
  Sex: Female

DRUGS (2)
  1. VUMERITY [Suspect]
     Active Substance: DIROXIMEL FUMARATE
     Indication: Multiple sclerosis
     Dosage: 432 MG TWICE DAILY
     Route: 050
     Dates: start: 20230310
  2. VUMERITY [Suspect]
     Active Substance: DIROXIMEL FUMARATE
     Route: 050
     Dates: start: 20211022

REACTIONS (2)
  - Multiple sclerosis relapse [Unknown]
  - COVID-19 [Unknown]

NARRATIVE: CASE EVENT DATE: 20231201
